FAERS Safety Report 17216198 (Version 1)
Quarter: 2019Q4

REPORT INFORMATION
  Report Type: Spontaneous
  Country: JP (occurrence: JP)
  Receive Date: 20191230
  Receipt Date: 20191230
  Transmission Date: 20200122
  Serious: Yes (Hospitalization)
  Sender: FDA-Public Use
  Company Number: JP-TAIHO ONCOLOGY  INC-JPTT190262

PATIENT
  Age: 57 Year
  Sex: Male
  Weight: 63.5 kg

DRUGS (6)
  1. LONSURF [Suspect]
     Active Substance: TIPIRACIL HYDROCHLORIDE\TRIFLURIDINE
     Indication: RECTAL CANCER METASTATIC
     Route: 048
     Dates: start: 20190808, end: 20191005
  2. E KEPPRA [Concomitant]
     Active Substance: LEVETIRACETAM
     Indication: METASTASES TO CENTRAL NERVOUS SYSTEM
     Route: 048
  3. PROTECADIN [Suspect]
     Active Substance: LAFUTIDINE
     Indication: PRODUCT USED FOR UNKNOWN INDICATION
     Route: 048
  4. LIXIANA OD [Concomitant]
     Active Substance: EDOXABAN TOSYLATE
     Indication: DEEP VEIN THROMBOSIS
     Route: 048
  5. DECADRON [Concomitant]
     Active Substance: DEXAMETHASONE
     Indication: METASTASES TO CENTRAL NERVOUS SYSTEM
     Route: 048
  6. WARFARIN [Concomitant]
     Active Substance: WARFARIN
     Indication: DEEP VEIN THROMBOSIS
     Dosage: DETAILS NOT REPORTED
     Route: 048

REACTIONS (4)
  - Aphasia [Unknown]
  - Pneumocystis jirovecii pneumonia [Recovering/Resolving]
  - White blood cell count decreased [Unknown]
  - Oral candidiasis [Recovering/Resolving]

NARRATIVE: CASE EVENT DATE: 20190820
